FAERS Safety Report 4276198-5 (Version None)
Quarter: 2004Q1

REPORT INFORMATION
  Report Type: 
  Country: None (occurrence: None)
  Receive Date: 20040121
  Receipt Date: 20030218
  Transmission Date: 20041129
  Serious: No
  Sender: FDA-Public Use
  Company Number: US-GLAXOSMITHKLINE-A0397018A

PATIENT
  Age: 40 Year
  Sex: Male

DRUGS (4)
  1. ZIAGEN [Suspect]
     Indication: HIV INFECTION
     Route: 048
  2. ZERIT [Concomitant]
     Indication: HIV INFECTION
     Route: 065
  3. UNKNOWN MEDICATION [Concomitant]
  4. ALCOHOL [Concomitant]
     Route: 048

REACTIONS (1)
  - BREATH ALCOHOL TEST POSITIVE [None]
